FAERS Safety Report 5362280-8 (Version None)
Quarter: 2007Q2

REPORT INFORMATION
  Report Type: 
  Country: None (occurrence: None)
  Receive Date: 20070619
  Receipt Date: 20070611
  Transmission Date: 20071010
  Serious: Yes (Hospitalization)
  Sender: FDA-Public Use
  Company Number: A0651023A

PATIENT
  Age: 36 Year
  Sex: Female
  Weight: 132 kg

DRUGS (6)
  1. IMITREX [Suspect]
     Indication: MIGRAINE PROPHYLAXIS
     Dosage: 6MG SINGLE DOSE
     Route: 042
     Dates: start: 20070511, end: 20070511
  2. EFFEXOR [Concomitant]
     Route: 048
  3. FLUOXETINE [Concomitant]
     Route: 048
  4. SEROQUEL [Concomitant]
     Route: 048
  5. ALPRAZOLAM [Concomitant]
     Route: 048
  6. ROZEREM [Concomitant]
     Route: 048

REACTIONS (4)
  - FEELING HOT [None]
  - INCORRECT ROUTE OF DRUG ADMINISTRATION [None]
  - NAUSEA [None]
  - PARAESTHESIA [None]
